FAERS Safety Report 21588956 (Version 11)
Quarter: 2023Q2

REPORT INFORMATION
  Report Type: Report from Study
  Country: US (occurrence: US)
  Receive Date: 20221114
  Receipt Date: 20230628
  Transmission Date: 20230721
  Serious: Yes (Life-Threatening, Hospitalization, Other)
  Sender: FDA-Public Use
  Company Number: US-002147023-NVSC2022US255583

PATIENT
  Sex: Female
  Weight: 47.62 kg

DRUGS (6)
  1. TREPROSTINIL [Suspect]
     Active Substance: TREPROSTINIL
     Indication: Pulmonary arterial hypertension
     Dosage: 1MG/ML CONT
     Route: 042
  2. TREPROSTINIL [Suspect]
     Active Substance: TREPROSTINIL
     Dosage: 190 NG/KG/MIN, CONT
     Route: 042
     Dates: start: 20221110
  3. TREPROSTINIL [Suspect]
     Active Substance: TREPROSTINIL
     Dosage: 190 NG/KG/MIN, CONT
     Route: 042
  4. TREPROSTINIL [Suspect]
     Active Substance: TREPROSTINIL
     Dosage: 190 NG/KG/MIN, CONT
     Route: 042
  5. TADALAFIL [Concomitant]
     Active Substance: TADALAFIL
     Indication: Product used for unknown indication
     Dosage: UNK
     Route: 065
  6. VELETRI [Concomitant]
     Active Substance: EPOPROSTENOL
     Indication: Product used for unknown indication
     Dosage: UNK
     Route: 042

REACTIONS (15)
  - Pneumonia [Unknown]
  - Gastric infection [Unknown]
  - Hepatic infection [Unknown]
  - Intra-abdominal fluid collection [Unknown]
  - Nasopharyngitis [Unknown]
  - Dyspnoea [Unknown]
  - Pulmonary oedema [Unknown]
  - Ill-defined disorder [Unknown]
  - Drug intolerance [Unknown]
  - Influenza [Unknown]
  - Paraesthesia [Unknown]
  - Weight decreased [Unknown]
  - Pain in extremity [Unknown]
  - Pain in jaw [Unknown]
  - Headache [Unknown]
